FAERS Safety Report 22121370 (Version 1)
Quarter: 2023Q1

REPORT INFORMATION
  Report Type: Spontaneous
  Country: US (occurrence: US)
  Receive Date: 20230321
  Receipt Date: 20230321
  Transmission Date: 20230418
  Serious: No
  Sender: FDA-Public Use
  Company Number: US-PFIZER INC-202300119010

PATIENT
  Sex: Male

DRUGS (1)
  1. PROTONIX [Suspect]
     Active Substance: PANTOPRAZOLE SODIUM
     Dosage: UNK
     Route: 042

REACTIONS (4)
  - Infusion site phlebitis [Unknown]
  - Infusion site extravasation [Unknown]
  - Infusion site induration [Unknown]
  - Infusion site warmth [Unknown]
